FAERS Safety Report 17721446 (Version 5)
Quarter: 2020Q3

REPORT INFORMATION
  Report Type: Report from Study
  Country: None (occurrence: US)
  Receive Date: 20200429
  Receipt Date: 20200930
  Transmission Date: 20201102
  Serious: Yes (Hospitalization, Other)
  Sender: FDA-Public Use
  Company Number: US-ABBVIE-20K-163-3379346-00

PATIENT
  Sex: Female
  Weight: 59.02 kg

DRUGS (1)
  1. HUMIRA [Suspect]
     Active Substance: ADALIMUMAB
     Indication: RHEUMATOID ARTHRITIS
     Route: 058

REACTIONS (8)
  - Neck injury [Recovering/Resolving]
  - Aortic aneurysm [Recovering/Resolving]
  - Nerve compression [Recovering/Resolving]
  - Arthritis [Unknown]
  - Neck pain [Recovering/Resolving]
  - Exostosis [Unknown]
  - Dyspnoea [Unknown]
  - Joint range of motion decreased [Recovering/Resolving]
